FAERS Safety Report 11099625 (Version 2)
Quarter: 2015Q2

REPORT INFORMATION
  Report Type: Report from Study
  Country: KR (occurrence: KR)
  Receive Date: 20150508
  Receipt Date: 20150512
  Transmission Date: 20150821
  Serious: Yes (Hospitalization)
  Sender: FDA-Public Use
  Company Number: KR-AMGEN-KORCT2015044307

PATIENT
  Age: 45 Year
  Sex: Female
  Weight: 69 kg

DRUGS (30)
  1. DOXORUBICIN [Concomitant]
     Active Substance: DOXORUBICIN
     Dosage: 89 MG, UNK
     Route: 042
     Dates: start: 20150326, end: 20150326
  2. CYCLOPHOSPHAMIDE. [Concomitant]
     Active Substance: CYCLOPHOSPHAMIDE
     Dosage: 890 MG, UNK
     Route: 042
     Dates: start: 20150305, end: 20150305
  3. DEXAMETHASONE. [Concomitant]
     Active Substance: DEXAMETHASONE
     Dosage: 10 MG, UNK
     Route: 042
     Dates: start: 20150305, end: 20150305
  4. DICLOFENAC [Concomitant]
     Active Substance: DICLOFENAC
     Dosage: 75 MG, UNK
     Route: 030
     Dates: start: 20150312, end: 20150315
  5. MEGASTROL [Concomitant]
     Dosage: 800 MG, UNK
     Route: 048
     Dates: start: 20150312, end: 20150315
  6. DOCETAXEL. [Concomitant]
     Active Substance: DOCETAXEL
     Dosage: 133 MG, UNK
     Route: 042
     Dates: start: 20150305, end: 20150305
  7. DOXORUBICIN [Concomitant]
     Active Substance: DOXORUBICIN
     Dosage: 89 MG, UNK
     Route: 042
     Dates: start: 20150416, end: 20150416
  8. PEGFILGRASTIM [Suspect]
     Active Substance: PEGFILGRASTIM
     Dosage: 6 MG, 1X/3WEEKS
     Route: 058
     Dates: start: 20150417
  9. DOXORUBICIN [Concomitant]
     Active Substance: DOXORUBICIN
     Dosage: 89 MG, UNK
     Route: 042
     Dates: start: 20150305, end: 20150305
  10. COUGH SYRUP [Concomitant]
     Active Substance: DEXTROMETHORPHAN HYDROBROMIDE\GUAIFENESIN
     Dosage: 60 ML, UNK
     Route: 048
     Dates: start: 20150312, end: 20150315
  11. ACTIFED [Concomitant]
     Active Substance: PSEUDOEPHEDRINE HYDROCHLORIDE\TRIPROLIDINE HYDROCHLORIDE
     Dosage: 2 DF, UNK
     Route: 048
     Dates: start: 20150312, end: 20150315
  12. DEXRAZOXANE. [Concomitant]
     Active Substance: DEXRAZOXANE
     Dosage: 890 MG, UNK
     Route: 042
     Dates: start: 20150305, end: 20150305
  13. PALONOSETRON [Concomitant]
     Active Substance: PALONOSETRON
     Dosage: 0.25 MG, UNK
     Route: 042
     Dates: start: 20150305, end: 20150305
  14. RANITIDINE [Concomitant]
     Active Substance: RANITIDINE\RANITIDINE HYDROCHLORIDE
     Dosage: 300 MG, UNK
     Route: 048
     Dates: start: 20150305, end: 20150307
  15. CEFOBACTAM [Concomitant]
     Dosage: 2 G, UNK
     Route: 042
     Dates: start: 20150312, end: 20150315
  16. TRESTAN                            /00056201/ [Concomitant]
     Dosage: 2 DF, UNK
     Route: 048
     Dates: start: 20150312, end: 20150315
  17. PEGFILGRASTIM [Suspect]
     Active Substance: PEGFILGRASTIM
     Dosage: 6 MG, 1X/3WEEKS
     Route: 058
     Dates: start: 20150327
  18. DOCETAXEL. [Concomitant]
     Active Substance: DOCETAXEL
     Dosage: 133 MG, UNK
     Route: 042
     Dates: start: 20150416, end: 20150416
  19. CYCLOPHOSPHAMIDE. [Concomitant]
     Active Substance: CYCLOPHOSPHAMIDE
     Dosage: 890 MG, UNK
     Route: 042
     Dates: start: 20150416, end: 20150416
  20. DIMENHYDRINATE. [Concomitant]
     Active Substance: DIMENHYDRINATE
     Dosage: 150 MG, UNK
     Route: 048
     Dates: start: 20150305, end: 20150307
  21. PEGFILGRASTIM [Suspect]
     Active Substance: PEGFILGRASTIM
     Indication: FEBRILE NEUTROPENIA
     Dosage: 6 MG, 1X/3WEEKS
     Route: 058
     Dates: start: 20150306
  22. DOCETAXEL. [Concomitant]
     Active Substance: DOCETAXEL
     Dosage: 133 MG, UNK
     Route: 042
     Dates: start: 20150326, end: 20150326
  23. DEXAMETHASONE. [Concomitant]
     Active Substance: DEXAMETHASONE
     Dosage: 3 MG, UNK
     Route: 048
     Dates: start: 20150306, end: 20150307
  24. CODEINE [Concomitant]
     Active Substance: CODEINE
     Dosage: 40 MG, UNK
     Route: 048
     Dates: start: 20150312, end: 20150315
  25. APREPITANT. [Concomitant]
     Active Substance: APREPITANT
     Dosage: 125 MG, UNK
     Route: 048
     Dates: start: 20150305, end: 20150305
  26. APREPITANT. [Concomitant]
     Active Substance: APREPITANT
     Dosage: 80 MG, UNK
     Route: 048
     Dates: start: 20150306, end: 20150307
  27. METOCLOPRAMIDE HCL [Concomitant]
     Active Substance: METOCLOPRAMIDE HYDROCHLORIDE
     Dosage: 30 MG, UNK
     Route: 048
     Dates: start: 20150305, end: 20150307
  28. CYCLOPHOSPHAMIDE. [Concomitant]
     Active Substance: CYCLOPHOSPHAMIDE
     Dosage: 890 MG, UNK
     Route: 042
     Dates: start: 20150326, end: 20150326
  29. TOBRAMYCIN. [Concomitant]
     Active Substance: TOBRAMYCIN
     Dosage: 200 MG, UNK
     Route: 042
     Dates: start: 20150312, end: 20150315
  30. VITAMEDIN                          /00176001/ [Concomitant]
     Dosage: 50 MG, UNK
     Route: 048
     Dates: start: 20150312, end: 20150315

REACTIONS (1)
  - Febrile neutropenia [Recovered/Resolved]

NARRATIVE: CASE EVENT DATE: 20150422
